FAERS Safety Report 23917143 (Version 2)
Quarter: 2024Q3

REPORT INFORMATION
  Report Type: Spontaneous
  Country: US (occurrence: US)
  Receive Date: 20240529
  Receipt Date: 20240710
  Transmission Date: 20241016
  Serious: No
  Sender: INCYTE
  Company Number: US-INCYTE CORPORATION-2024IN005549

PATIENT

DRUGS (3)
  1. JAKAFI [Suspect]
     Active Substance: RUXOLITINIB
     Indication: Myelofibrosis
     Dosage: 10 MILLIGRAM (10 MG QAM, 5 MG QPM)
     Route: 048
     Dates: start: 20231130
  2. JAKAFI [Suspect]
     Active Substance: RUXOLITINIB
     Dosage: 5 MILLIGRAM (10 MG QAM, 5 MG QPM)
     Route: 048
     Dates: start: 20231130
  3. JAKAFI [Suspect]
     Active Substance: RUXOLITINIB
     Dosage: 5MG EVERY EVENING AND 10MG EVERY MORNING
     Route: 048
     Dates: start: 20231226

REACTIONS (5)
  - Muscle strain [Unknown]
  - Arthritis [Unknown]
  - Skin mass [Unknown]
  - Pain [Unknown]
  - Product dose omission issue [Unknown]
